FAERS Safety Report 11769612 (Version 1)
Quarter: 2015Q4

REPORT INFORMATION
  Report Type: Spontaneous
  Country: IT (occurrence: IT)
  Receive Date: 20151123
  Receipt Date: 20151123
  Transmission Date: 20160304
  Serious: Yes (Death, Hospitalization, Other)
  Sender: FDA-Public Use
  Company Number: PHHY2015IT128496

PATIENT
  Age: 25 Year
  Sex: Female
  Weight: 51 kg

DRUGS (26)
  1. REVOLADE [Suspect]
     Active Substance: ELTROMBOPAG
     Dosage: 50 MG, 1D
     Route: 048
     Dates: start: 20150413, end: 20150728
  2. REVOLADE [Suspect]
     Active Substance: ELTROMBOPAG
     Dosage: 25 MG, 1D
     Route: 048
     Dates: start: 20150729, end: 20150803
  3. TARGOSID [Concomitant]
     Active Substance: TEICOPLANIN
     Indication: PRODUCT USED FOR UNKNOWN INDICATION
     Route: 065
     Dates: start: 201411, end: 201411
  4. REVOLADE [Suspect]
     Active Substance: ELTROMBOPAG
     Indication: APLASIA PURE RED CELL
     Dosage: 50 MG, 1D
     Route: 048
     Dates: start: 20141029, end: 20141111
  5. REVOLADE [Suspect]
     Active Substance: ELTROMBOPAG
     Dosage: 50 MG, 1D
     Route: 048
     Dates: start: 20150223, end: 20150308
  6. ROCALTROL [Concomitant]
     Active Substance: CALCITRIOL
     Indication: PRODUCT USED FOR UNKNOWN INDICATION
     Dosage: 0.25 UG, UNK
     Route: 048
     Dates: start: 20150804
  7. TEICOPLANIN [Concomitant]
     Active Substance: TEICOPLANIN
     Indication: PRODUCT USED FOR UNKNOWN INDICATION
     Route: 065
     Dates: start: 201502, end: 201502
  8. OXACILLINA [Concomitant]
     Indication: PRODUCT USED FOR UNKNOWN INDICATION
     Route: 065
     Dates: start: 201502, end: 201502
  9. CEFTRIAXONE. [Concomitant]
     Active Substance: CEFTRIAXONE
     Indication: PRODUCT USED FOR UNKNOWN INDICATION
     Route: 065
     Dates: start: 201502, end: 201502
  10. REVOLADE [Suspect]
     Active Substance: ELTROMBOPAG
     Dosage: 75 MG, 1D
     Route: 048
     Dates: start: 20141112, end: 20150222
  11. DESFERAL [Concomitant]
     Active Substance: DEFEROXAMINE MESYLATE
     Indication: PRODUCT USED FOR UNKNOWN INDICATION
     Dosage: 1000 MG, UNK
     Route: 058
     Dates: start: 20150803
  12. FOLINA [Concomitant]
     Active Substance: FOLIC ACID
     Indication: PRODUCT USED FOR UNKNOWN INDICATION
     Dosage: 5 MG, UNK
     Route: 048
     Dates: start: 20150730
  13. CALCIUM [Concomitant]
     Active Substance: CALCIUM
     Indication: PRODUCT USED FOR UNKNOWN INDICATION
     Dosage: 3 G, UNK
     Route: 048
     Dates: start: 20150803
  14. DIDROGYL [Concomitant]
     Indication: PRODUCT USED FOR UNKNOWN INDICATION
     Dosage: 20 DF, UNK
     Route: 048
     Dates: start: 20150731
  15. MERCILON [Suspect]
     Active Substance: DESOGESTREL\ETHINYL ESTRADIOL
     Dosage: 1 DF, UNK
     Route: 065
     Dates: start: 20150804
  16. DELTACORTENE [Concomitant]
     Active Substance: PREDNISONE
     Indication: PRODUCT USED FOR UNKNOWN INDICATION
     Dosage: 10 MG, UNK
     Route: 048
     Dates: start: 20150802
  17. CEFTAZIDIME. [Concomitant]
     Active Substance: CEFTAZIDIME
     Indication: PRODUCT USED FOR UNKNOWN INDICATION
     Route: 065
     Dates: start: 201502, end: 201502
  18. XANAX [Concomitant]
     Active Substance: ALPRAZOLAM
     Indication: PRODUCT USED FOR UNKNOWN INDICATION
     Dosage: 1 MG, UNK
     Route: 048
     Dates: start: 20150802
  19. ENTACT [Concomitant]
     Active Substance: ESCITALOPRAM OXALATE
     Indication: PRODUCT USED FOR UNKNOWN INDICATION
     Dosage: 3 DF, UNK
     Route: 048
     Dates: start: 20150731
  20. CUBICIN [Concomitant]
     Active Substance: DAPTOMYCIN
     Indication: PRODUCT USED FOR UNKNOWN INDICATION
     Route: 065
     Dates: start: 201411, end: 201411
  21. REVOLADE [Suspect]
     Active Substance: ELTROMBOPAG
     Dosage: 25 MG, 1D
     Route: 048
     Dates: start: 20150309, end: 20150412
  22. MERCILON [Suspect]
     Active Substance: DESOGESTREL\ETHINYL ESTRADIOL
     Indication: ANAEMIA
     Dosage: 1 UNK, CYCLIC
     Route: 048
     Dates: start: 20130121, end: 20150804
  23. CATAPRESAN                              /GFR/ [Concomitant]
     Indication: PRODUCT USED FOR UNKNOWN INDICATION
     Dosage: 150 UG, UNK
     Route: 048
     Dates: start: 20150803
  24. IMIPENEM [Concomitant]
     Active Substance: IMIPENEM
     Indication: PRODUCT USED FOR UNKNOWN INDICATION
     Route: 065
     Dates: start: 201411, end: 201411
  25. LEVOFLOXACINA [Concomitant]
     Active Substance: LEVOFLOXACIN
     Indication: PRODUCT USED FOR UNKNOWN INDICATION
     Route: 065
     Dates: start: 201502, end: 201502
  26. PANTOPRAZOLE [Concomitant]
     Active Substance: PANTOPRAZOLE SODIUM
     Indication: PRODUCT USED FOR UNKNOWN INDICATION
     Dosage: 40 MG, UNK
     Route: 048
     Dates: start: 20150731

REACTIONS (10)
  - Pulmonary infarction [Fatal]
  - Venous thrombosis limb [Recovered/Resolved]
  - Staphylococcal infection [Unknown]
  - Enterobacter infection [Unknown]
  - Venous thrombosis [Recovered/Resolved]
  - Cardiac failure [Unknown]
  - Multi-organ failure [Unknown]
  - Venous thrombosis limb [Recovered/Resolved]
  - Pulmonary embolism [Fatal]
  - Splenomegaly [Unknown]

NARRATIVE: CASE EVENT DATE: 20141106
